FAERS Safety Report 12154585 (Version 1)
Quarter: 2016Q1

REPORT INFORMATION
  Report Type: Spontaneous
  Country: US (occurrence: None)
  Receive Date: 20160304
  Receipt Date: 20160304
  Transmission Date: 20160526
  Serious: Yes (Hospitalization, Other)
  Sender: FDA-Public Use
  Company Number: None

PATIENT
  Age: 55 Year
  Sex: Female
  Weight: 68.04 kg

DRUGS (6)
  1. DEPAKOTE [Concomitant]
     Active Substance: DIVALPROEX SODIUM
  2. LYRICA [Concomitant]
     Active Substance: PREGABALIN
  3. CIPRO [Concomitant]
     Active Substance: CIPROFLOXACIN HYDROCHLORIDE
  4. FYCOMPA [Suspect]
     Active Substance: PERAMPANEL
     Indication: EPILEPSY
     Route: 048
     Dates: start: 20150601, end: 20160112
  5. CALCIUM [Concomitant]
     Active Substance: CALCIUM
  6. VIT D SUPPLEMENT [Concomitant]

REACTIONS (4)
  - Aggression [None]
  - Suicidal ideation [None]
  - Homicidal ideation [None]
  - Confusional state [None]

NARRATIVE: CASE EVENT DATE: 20160108
